FAERS Safety Report 5764660-5 (Version None)
Quarter: 2008Q2

REPORT INFORMATION
  Report Type: 
  Country: None (occurrence: None)
  Receive Date: 20080611
  Receipt Date: 20080604
  Transmission Date: 20081010
  Serious: Yes (Other)
  Sender: FDA-Public Use
  Company Number: PHNU2008DE02006

PATIENT
  Sex: Male

DRUGS (3)
  1. TEGRETOL [Suspect]
     Indication: SIMPLE PARTIAL SEIZURES
  2. TRILEPTAL [Suspect]
     Indication: SIMPLE PARTIAL SEIZURES
     Dosage: 0.5 DF, QD
     Route: 048
  3. OMEP [Suspect]
     Indication: PROPHYLAXIS
     Dosage: 20MG/DAY

REACTIONS (5)
  - ABDOMINAL DISTENSION [None]
  - DRUG INEFFECTIVE [None]
  - FAECES DISCOLOURED [None]
  - GASTRIC HAEMORRHAGE [None]
  - STOMACH DISCOMFORT [None]
